FAERS Safety Report 5580252-5 (Version None)
Quarter: 2007Q4

REPORT INFORMATION
  Report Type: 
  Country: None (occurrence: None)
  Receive Date: 20071231
  Receipt Date: 20071231
  Transmission Date: 20080405
  Serious: Yes (Other)
  Sender: FDA-Public Use
  Company Number: None

PATIENT
  Age: 60 Year
  Sex: Male
  Weight: 84 kg

DRUGS (1)
  1. INTRON A [Suspect]
     Indication: GASTROINTESTINAL STROMAL TUMOUR
     Dosage: 6 MILLION UNITS DAILY X ONCE WEEK SQ
     Route: 058
     Dates: start: 20071217, end: 20071220

REACTIONS (2)
  - NEUTROPHIL COUNT DECREASED [None]
  - WHITE BLOOD CELL COUNT DECREASED [None]
